FAERS Safety Report 4633165-7 (Version None)
Quarter: 2005Q2

REPORT INFORMATION
  Report Type: 
  Country: None (occurrence: None)
  Receive Date: 20050411
  Receipt Date: 20050411
  Transmission Date: 20051028
  Serious: Yes (Hospitalization)
  Sender: FDA-Public Use
  Company Number: None

PATIENT
  Sex: Male
  Weight: 101.8 kg

DRUGS (2)
  1. IMATINIB MESYLATE 100MG CAPSULES, NOVARTIS [Suspect]
     Indication: GLIOBLASTOMA MULTIFORME
     Dosage: 600MG, PO QD
     Route: 048
     Dates: start: 20050311, end: 20050318
  2. TEMOZOLOMIDE [Suspect]
     Indication: GLIOBLASTOMA MULTIFORME
     Dosage: 335MG, PO QD
     Route: 048
     Dates: start: 20050314, end: 20050318

REACTIONS (9)
  - ABDOMINAL DISCOMFORT [None]
  - DEHYDRATION [None]
  - DIARRHOEA [None]
  - FREQUENT BOWEL MOVEMENTS [None]
  - HEADACHE [None]
  - NAUSEA [None]
  - PYREXIA [None]
  - VIRAL INFECTION [None]
  - VOMITING [None]
